FAERS Safety Report 5380464-X (Version None)
Quarter: 2007Q3

REPORT INFORMATION
  Report Type: 
  Country: None (occurrence: None)
  Receive Date: 20070706
  Receipt Date: 20070626
  Transmission Date: 20080115
  Serious: Yes (Hospitalization, Other)
  Sender: FDA-Public Use
  Company Number: US-ROCHE-493932

PATIENT
  Age: 49 Year
  Sex: Male
  Weight: 73.9 kg

DRUGS (15)
  1. PEGASYS [Suspect]
     Indication: HEPATITIS C
     Route: 058
     Dates: start: 20060601, end: 20070301
  2. PEGASYS [Suspect]
     Route: 058
     Dates: start: 20070301, end: 20070511
  3. EFFEXOR [Suspect]
     Indication: DRUG USE FOR UNKNOWN INDICATION
     Route: 065
     Dates: end: 20070401
  4. CELEXA [Suspect]
     Indication: DEPRESSION
     Route: 065
  5. BACLOFEN [Suspect]
     Indication: DRUG USE FOR UNKNOWN INDICATION
     Route: 065
  6. OPIATE NOS [Suspect]
     Indication: DRUG USE FOR UNKNOWN INDICATION
     Route: 065
  7. WELLBUTRIN [Suspect]
     Indication: DEPRESSION
     Route: 048
     Dates: start: 20070417
  8. VOLTAREN [Suspect]
     Route: 065
  9. ZITHROMAX [Concomitant]
     Route: 048
  10. HYDROCHLOROTHIAZIDE [Concomitant]
     Route: 048
  11. TOPROL-XL [Concomitant]
     Route: 048
  12. ATIVAN [Concomitant]
     Dates: start: 20070418
  13. BENADRYL [Concomitant]
     Dates: start: 20070418
  14. COGENTIN [Concomitant]
     Dates: start: 20070418
  15. PARAFON [Concomitant]

REACTIONS (14)
  - ABDOMINAL DISCOMFORT [None]
  - ABDOMINAL PAIN UPPER [None]
  - BACK PAIN [None]
  - DIARRHOEA [None]
  - FATIGUE [None]
  - HAEMATOCHEZIA [None]
  - HAEMOGLOBIN DECREASED [None]
  - HEPATOMEGALY [None]
  - LEUKOPENIA [None]
  - MENTAL STATUS CHANGES [None]
  - NECK PAIN [None]
  - RECTAL HAEMORRHAGE [None]
  - RED BLOOD CELL COUNT DECREASED [None]
  - THROMBOCYTOPENIA [None]
